FAERS Safety Report 10009679 (Version 1)
Quarter: 2014Q1

REPORT INFORMATION
  Report Type: Spontaneous
  Country: US (occurrence: US)
  Receive Date: 20140313
  Receipt Date: 20140313
  Transmission Date: 20141002
  Serious: Yes (Other)
  Sender: FDA-Public Use
  Company Number: US-TEVA-468564USA

PATIENT
  Age: 46 Year
  Sex: Male
  Weight: 163.44 kg

DRUGS (3)
  1. FENTORA [Suspect]
     Indication: BACK PAIN
     Dates: start: 2006, end: 20140304
  2. OXYCODONE [Concomitant]
     Indication: BACK PAIN
     Dosage: 6 TO 8 TIMES A DAY
     Route: 048
     Dates: start: 2006, end: 20140304
  3. INSULIN [Concomitant]
     Indication: DIABETES MELLITUS

REACTIONS (9)
  - Diabetes mellitus inadequate control [Unknown]
  - Drug withdrawal syndrome [Not Recovered/Not Resolved]
  - Blood testosterone decreased [Unknown]
  - Insomnia [Not Recovered/Not Resolved]
  - Back pain [Not Recovered/Not Resolved]
  - Pain [Not Recovered/Not Resolved]
  - Back pain [Not Recovered/Not Resolved]
  - Musculoskeletal discomfort [Not Recovered/Not Resolved]
  - Off label use [Unknown]
